FAERS Safety Report 18627586 (Version 1)
Quarter: 2020Q4

REPORT INFORMATION
  Report Type: Spontaneous
  Country: US (occurrence: US)
  Receive Date: 20201217
  Receipt Date: 20201217
  Transmission Date: 20210114
  Serious: Yes (Death, Hospitalization)
  Sender: FDA-Public Use
  Company Number: None

PATIENT
  Sex: Female
  Weight: 82.6 kg

DRUGS (4)
  1. BENDAMUSTINE HYDROCHLORIDE. [Concomitant]
     Active Substance: BENDAMUSTINE HYDROCHLORIDE
  2. ACALABRUTINIB. [Suspect]
     Active Substance: ACALABRUTINIB
  3. CYTARABINE. [Concomitant]
     Active Substance: CYTARABINE
  4. RITUXIMAB (MOAB C2B8 ANTI CD20, CHIMERIC) [Concomitant]
     Active Substance: RITUXIMAB

REACTIONS (5)
  - Unresponsive to stimuli [None]
  - Cerebral haemorrhage [None]
  - Aphasia [None]
  - Ischaemic stroke [None]
  - Febrile neutropenia [None]

NARRATIVE: CASE EVENT DATE: 20201206
